FAERS Safety Report 23888891 (Version 2)
Quarter: 2024Q2

REPORT INFORMATION
  Report Type: Spontaneous
  Country: DE (occurrence: DE)
  Receive Date: 20240523
  Receipt Date: 20240605
  Transmission Date: 20240717
  Serious: Yes (Other)
  Sender: FDA-Public Use
  Company Number: DE-BAYER-2024A073608

PATIENT
  Sex: Female

DRUGS (2)
  1. EYLEA HD [Suspect]
     Active Substance: AFLIBERCEPT
     Indication: Neovascular age-related macular degeneration
     Dosage: UNK, SOLUTION FOR INJECTION, 114.3 MG/ML
     Dates: start: 20240312, end: 20240312
  2. EYLEA HD [Suspect]
     Active Substance: AFLIBERCEPT
     Dosage: UNK, SOLUTION FOR INJECTION, 114.3 MG/ML
     Dates: start: 20240507, end: 20240507

REACTIONS (4)
  - Anterior chamber disorder [Recovering/Resolving]
  - Anterior chamber cell [Recovering/Resolving]
  - Vitritis [Recovering/Resolving]
  - Visual impairment [Recovering/Resolving]

NARRATIVE: CASE EVENT DATE: 20240510
